FAERS Safety Report 7532494-7 (Version None)
Quarter: 2011Q2

REPORT INFORMATION
  Report Type: 
  Country: None (occurrence: None)
  Receive Date: 20110608
  Receipt Date: 20110525
  Transmission Date: 20111010
  Serious: Yes (Other)
  Sender: FDA-Public Use
  Company Number: PHHY2011US45118

PATIENT

DRUGS (2)
  1. RADIOTHERAPY [Concomitant]
  2. GLEEVEC [Suspect]

REACTIONS (2)
  - NEOPLASM MALIGNANT [None]
  - LUNG ADENOCARCINOMA [None]
